FAERS Safety Report 13161180 (Version 1)
Quarter: 2017Q1

REPORT INFORMATION
  Report Type: Spontaneous
  Country: GB (occurrence: GB)
  Receive Date: 20170130
  Receipt Date: 20170130
  Transmission Date: 20170428
  Serious: Yes (Disabling)
  Sender: FDA-Public Use
  Company Number: GB-ACCORD-047640

PATIENT
  Age: 84 Year
  Sex: Female
  Weight: 81 kg

DRUGS (12)
  1. QUININE [Concomitant]
     Active Substance: QUININE
     Dosage: AT NIGHT
  2. CLONAZEPAM. [Concomitant]
     Active Substance: CLONAZEPAM
     Dosage: AT NIGHT.
  3. ACIDEX [Concomitant]
     Active Substance: CALCIUM CARBONATE\SODIUM ALGINATE\SODIUM BICARBONATE
  4. CALCIUM/COLECALCIFEROL [Concomitant]
  5. PERINDOPRIL [Concomitant]
     Active Substance: PERINDOPRIL
  6. SINEMET [Concomitant]
     Active Substance: CARBIDOPA\LEVODOPA
     Dosage: 25MG/100MG
  7. ZAPAIN [Concomitant]
     Active Substance: ACETAMINOPHEN\CODEINE PHOSPHATE
     Dosage: 30MG/500 MG. TWO TO BE TAKEN FOUR TIMES A DAY.
  8. CLENIL MODULITE [Concomitant]
     Active Substance: BECLOMETHASONE DIPROPIONATE
     Route: 055
  9. RANITIDINE. [Concomitant]
     Active Substance: RANITIDINE
  10. DONEPEZIL/DONEPEZIL HYDROCHLORIDE [Suspect]
     Active Substance: DONEPEZIL HYDROCHLORIDE
     Indication: DEMENTIA
     Route: 048
     Dates: start: 20161115, end: 20161128
  11. VENTOLIN [Concomitant]
     Active Substance: ALBUTEROL SULFATE
     Route: 055
  12. HYDROXOCOBALAMIN/HYDROXOCOBALAMIN ACETATE/HYDROXOCOBALAMIN HYDROCHLORIDE [Concomitant]
     Dosage: 1MG/1MG

REACTIONS (3)
  - Anger [Recovering/Resolving]
  - Irritability [Recovering/Resolving]
  - Confusional state [Recovering/Resolving]

NARRATIVE: CASE EVENT DATE: 20161122
